FAERS Safety Report 6272479-4 (Version None)
Quarter: 2009Q3

REPORT INFORMATION
  Report Type: 
  Country: None (occurrence: None)
  Receive Date: 20090715
  Receipt Date: 20090702
  Transmission Date: 20100115
  Serious: Yes (Other)
  Sender: FDA-Public Use
  Company Number: AE-2009-106

PATIENT
  Sex: Female

DRUGS (9)
  1. METFORMIN HCL [Suspect]
     Indication: DIABETES MELLITUS
     Dosage: ORAL
     Route: 048
  2. RITUXIMAB [Suspect]
     Indication: MYELITIS TRANSVERSE
     Dosage: INTRAVENOUS
     Route: 042
  3. ALENDRONIC ACID [Concomitant]
  4. AMITRIPTYLINE HCL [Concomitant]
  5. GABAPENTIN [Concomitant]
  6. CALCICHEW D3 [Concomitant]
  7. OMEPRAZOLE [Concomitant]
  8. ACETAMINOPHEN [Concomitant]
  9. SOLIFENACIN SUCCINATE [Concomitant]

REACTIONS (5)
  - C-REACTIVE PROTEIN INCREASED [None]
  - LACTIC ACIDOSIS [None]
  - LETHARGY [None]
  - MALAISE [None]
  - WHITE BLOOD CELL COUNT INCREASED [None]
